FAERS Safety Report 12875157 (Version 1)
Quarter: 2016Q4

REPORT INFORMATION
  Report Type: Spontaneous
  Country: RE (occurrence: RE)
  Receive Date: 20161024
  Receipt Date: 20161024
  Transmission Date: 20170207
  Serious: Yes (Other)
  Sender: FDA-Public Use
  Company Number: RE-ROCHE-1844786

PATIENT
  Age: 12 Year
  Sex: Male

DRUGS (1)
  1. MYCOPHENOLATE MOFETIL. [Suspect]
     Active Substance: MYCOPHENOLATE MOFETIL
     Indication: NEPHROTIC SYNDROME
     Route: 065

REACTIONS (1)
  - Bronchiectasis [Not Recovered/Not Resolved]
